FAERS Safety Report 24656669 (Version 1)
Quarter: 2024Q4

REPORT INFORMATION
  Report Type: Spontaneous
  Country: CH (occurrence: CH)
  Receive Date: 20241124
  Receipt Date: 20241124
  Transmission Date: 20250115
  Serious: Yes (Death)
  Sender: AMGEN
  Company Number: CH-AMGEN-CHESP2024229683

PATIENT
  Sex: Male

DRUGS (1)
  1. OTEZLA [Suspect]
     Active Substance: APREMILAST
     Indication: Psoriasis
     Dosage: UNK UNK, QD
     Route: 065

REACTIONS (1)
  - Death [Fatal]
